FAERS Safety Report 5242033-1 (Version None)
Quarter: 2007Q1

REPORT INFORMATION
  Report Type: 
  Country: None (occurrence: None)
  Receive Date: 20070212
  Receipt Date: 20070129
  Transmission Date: 20070707
  Serious: Yes (Other)
  Sender: FDA-Public Use
  Company Number: 152385USA

PATIENT
  Sex: Female

DRUGS (2)
  1. HYDROCHLOROTHIAZIDE TABLETS USP, 25MG AND 50MG(HYDROCHLOROTHIAZIDE) [Suspect]
     Indication: HYPERTENSION
     Dosage: (25 MG), ORAL
     Route: 048
     Dates: start: 20010101
  2. INTERFERON BETA-1A [Concomitant]

REACTIONS (3)
  - CONVULSION [None]
  - DEHYDRATION [None]
  - FLUID INTAKE REDUCED [None]
